FAERS Safety Report 4528590-9 (Version None)
Quarter: 2004Q4

REPORT INFORMATION
  Report Type: 
  Country: None (occurrence: None)
  Receive Date: 20041216
  Receipt Date: 20041207
  Transmission Date: 20050328
  Serious: Yes (Other)
  Sender: FDA-Public Use
  Company Number: PHBS2004JP16604

PATIENT
  Age: 71 Year
  Sex: Male

DRUGS (3)
  1. LIPITOR [Suspect]
     Dosage: 10 MG/DAY
     Route: 048
     Dates: start: 20031027, end: 20031115
  2. LOCHOL [Suspect]
     Indication: HYPERLIPIDAEMIA
     Dosage: 60 MG/DAY
     Route: 048
     Dates: start: 20031015, end: 20031027
  3. LOCHOL [Suspect]
     Dosage: 30 MG/DAY
     Route: 048
     Dates: start: 20031116, end: 20031126

REACTIONS (5)
  - BLOOD CREATINE PHOSPHOKINASE INCREASED [None]
  - CONVULSION [None]
  - LOSS OF CONSCIOUSNESS [None]
  - MUSCLE RIGIDITY [None]
  - RHABDOMYOLYSIS [None]
